FAERS Safety Report 17791488 (Version 9)
Quarter: 2021Q1

REPORT INFORMATION
  Report Type: Other
  Country: US (occurrence: US)
  Receive Date: 20200515
  Receipt Date: 20210316
  Transmission Date: 20210419
  Serious: Yes (Hospitalization, Other)
  Sender: FDA-Public Use
  Company Number: US-ROCHE-2598539

PATIENT
  Age: 80 Year
  Sex: Female
  Weight: 44.49 kg

DRUGS (11)
  1. OCREVUS [Suspect]
     Active Substance: OCRELIZUMAB
     Indication: RELAPSING MULTIPLE SCLEROSIS
     Route: 042
     Dates: start: 20181010, end: 20191024
  2. ELLURA [Concomitant]
     Active Substance: DIETARY SUPPLEMENT
     Dosage: YES
  3. PRESERVISION [Concomitant]
     Active Substance: MINERALS\VITAMINS
     Dosage: YES
  4. LEVOTHYROXINE. [Concomitant]
     Active Substance: LEVOTHYROXINE
     Dosage: YES
  5. OCREVUS [Suspect]
     Active Substance: OCRELIZUMAB
     Indication: RELAPSING-REMITTING MULTIPLE SCLEROSIS
     Dosage: DATES OF TREATMENT: 10/OCT/2018 ,24/OCT/2018, 24/APR/2019,11/SEP/2019,24/OCT/2019
     Route: 042
     Dates: start: 2019, end: 201912
  6. DILTIAZEM. [Concomitant]
     Active Substance: DILTIAZEM
     Dosage: YES
  7. AMITIZA [Concomitant]
     Active Substance: LUBIPROSTONE
     Dosage: UNITS=MCG ;ONGOING: YES
  8. PANTOPRAZOLE [Concomitant]
     Active Substance: PANTOPRAZOLE
     Dosage: YES
  9. XARELTO [Concomitant]
     Active Substance: RIVAROXABAN
     Dosage: YES
  10. VITAMIN D3 [Concomitant]
     Active Substance: CHOLECALCIFEROL
  11. TYLENOL [Concomitant]
     Active Substance: ACETAMINOPHEN
     Dosage: YES

REACTIONS (16)
  - Nephrolithiasis [Unknown]
  - Weight decreased [Not Recovered/Not Resolved]
  - Off label use [Unknown]
  - Kidney infection [Recovered/Resolved]
  - Myocardial infarction [Unknown]
  - Retching [Not Recovered/Not Resolved]
  - Eructation [Not Recovered/Not Resolved]
  - Asthenia [Not Recovered/Not Resolved]
  - Urinary tract infection [Not Recovered/Not Resolved]
  - Dyspepsia [Not Recovered/Not Resolved]
  - Feeding disorder [Not Recovered/Not Resolved]
  - Pulmonary mass [Not Recovered/Not Resolved]
  - Sepsis [Unknown]
  - Pain [Not Recovered/Not Resolved]
  - Cerebrovascular accident [Recovered/Resolved]
  - Intentional product use issue [Unknown]

NARRATIVE: CASE EVENT DATE: 202004
